FAERS Safety Report 6663536-9 (Version None)
Quarter: 2010Q2

REPORT INFORMATION
  Report Type: 
  Country: None (occurrence: None)
  Receive Date: 20100401
  Receipt Date: 20100323
  Transmission Date: 20101027
  Serious: Yes (Death, Other)
  Sender: FDA-Public Use
  Company Number: US-PFIZER INC-2009315425

PATIENT
  Sex: Male
  Weight: 115.19 kg

DRUGS (1)
  1. REVATIO [Suspect]
     Dosage: 20 MG, UNK

REACTIONS (4)
  - DEATH [None]
  - DYSPNOEA [None]
  - FALL [None]
  - HEAD INJURY [None]
